FAERS Safety Report 20900232 (Version 1)
Quarter: 2022Q2

REPORT INFORMATION
  Report Type: Spontaneous
  Country: ES (occurrence: ES)
  Receive Date: 20220601
  Receipt Date: 20220601
  Transmission Date: 20220721
  Serious: Yes (Death, Other)
  Sender: FDA-Public Use
  Company Number: None

PATIENT
  Age: 87 Year
  Sex: Male

DRUGS (13)
  1. METHOTREXATE SODIUM [Suspect]
     Active Substance: METHOTREXATE SODIUM
     Indication: Psoriasis
     Route: 051
     Dates: start: 1992, end: 20210702
  2. ASPIRIN [Concomitant]
     Active Substance: ASPIRIN
     Dosage: 30 TABLETS
     Route: 048
  3. AMILORID [Concomitant]
     Dosage: STRENGTH:  5 MG/ 50 MG,  60 TABLETS
     Route: 048
  4. ATROVENT [Concomitant]
     Active Substance: IPRATROPIUM BROMIDE
     Dosage: PRESSURIZED SOLUTION FOR INHALATION, 1 INHALER OF 200 DOSES
  5. DIGARIL PROLIB [Concomitant]
     Dosage: 28 TABLETS
     Route: 048
  6. DOXAZOSIN [Concomitant]
     Active Substance: DOXAZOSIN MESYLATE
     Dosage: 28 TABLETS
     Route: 048
  7. FLUTICASONE PROPIONATE [Concomitant]
     Active Substance: FLUTICASONE PROPIONATE
     Indication: Dyspnoea
     Dosage: SUSPENSION FOR INHALATION IN PRESSURIZED CONTAINER, 1 INHALER OF 120 DOSES
     Route: 055
  8. LEUCOVORIN [Concomitant]
     Active Substance: LEUCOVORIN
     Dosage: 10 TABLETS
     Route: 048
  9. LACEROL [Concomitant]
     Dosage: 60 CAPSULES
     Route: 048
  10. OMEPRAZOLE [Concomitant]
     Active Substance: OMEPRAZOLE
     Dosage: 28 CAPSULES
     Route: 048
  11. PREDNISONE [Concomitant]
     Active Substance: PREDNISONE
  12. ACETAMINOPHEN [Concomitant]
     Active Substance: ACETAMINOPHEN
     Dosage: 40 TABLETS
     Route: 048
  13. VALSARTAN [Concomitant]
     Active Substance: VALSARTAN
     Dosage: 28 TABLETS
     Route: 048

REACTIONS (2)
  - Pulmonary fibrosis [Fatal]
  - Pneumonitis [Not Recovered/Not Resolved]

NARRATIVE: CASE EVENT DATE: 20210301
